FAERS Safety Report 20015799 (Version 1)
Quarter: 2021Q4

REPORT INFORMATION
  Report Type: Spontaneous
  Country: US (occurrence: None)
  Receive Date: 20211101
  Receipt Date: 20211101
  Transmission Date: 20220304
  Serious: No
  Sender: FDA-Public Use
  Company Number: None

PATIENT
  Age: 58 Year
  Sex: Male
  Weight: 60.78 kg

DRUGS (1)
  1. PRIVIGEN [Suspect]
     Active Substance: HUMAN IMMUNOGLOBULIN G
     Indication: White blood cell disorder
     Dosage: FREQUENCY : MONTHLY;?
     Route: 042

REACTIONS (2)
  - Rash pruritic [None]
  - Nasal pruritus [None]

NARRATIVE: CASE EVENT DATE: 20211027
